FAERS Safety Report 5726155-4 (Version None)
Quarter: 2008Q2

REPORT INFORMATION
  Report Type: 
  Country: None (occurrence: None)
  Receive Date: 20080502
  Receipt Date: 20080422
  Transmission Date: 20081010
  Serious: Yes (Hospitalization, Other)
  Sender: FDA-Public Use
  Company Number: US-BAYER-200814440NA

PATIENT

DRUGS (13)
  1. AVELOX [Suspect]
     Indication: BRONCHITIS
     Dosage: TOTAL DAILY DOSE: 400 MG  UNIT DOSE: 400 MG
     Route: 048
  2. AVELOX [Suspect]
     Dosage: TOTAL DAILY DOSE: 400 MG  UNIT DOSE: 400 MG
     Route: 048
  3. CARDIZEM [Concomitant]
  4. ALLEGRA [Concomitant]
  5. ZOLOFT [Concomitant]
  6. PLAVIX [Concomitant]
  7. LASIX [Concomitant]
  8. ASPIRIN [Concomitant]
  9. FLOVENT [Concomitant]
  10. RISPERDAL [Concomitant]
  11. ALBUTEROL [Concomitant]
  12. OXYGEN [Concomitant]
  13. INFLUENZA VACCINE [Concomitant]
     Dates: start: 20070101

REACTIONS (7)
  - ANAPHYLACTIC REACTION [None]
  - HYPOTENSION [None]
  - PRURITUS [None]
  - PULSE ABNORMAL [None]
  - RASH [None]
  - UNEVALUABLE EVENT [None]
  - URTICARIA [None]
